FAERS Safety Report 25643539 (Version 2)
Quarter: 2025Q3

REPORT INFORMATION
  Report Type: Spontaneous
  Country: US (occurrence: US)
  Receive Date: 20250805
  Receipt Date: 20250812
  Transmission Date: 20251020
  Serious: No
  Sender: ROCHE
  Company Number: US-ROCHE-10000347577

PATIENT
  Age: 60 Year
  Sex: Female

DRUGS (14)
  1. XOLAIR [Suspect]
     Active Substance: OMALIZUMAB
     Indication: Asthma
     Dosage: STRENGTH:75 MG/0.5ML AND 300MG, TOTAL DOSE: 375 MG?2-150MG SYRINGES AND 1-75MG SYRINGE
     Route: 058
  2. XOLAIR [Suspect]
     Active Substance: OMALIZUMAB
     Dosage: 2-150MG SYRINGES AND 1-75MG SYRINGE
     Route: 058
     Dates: start: 20250709
  3. XOLAIR [Suspect]
     Active Substance: OMALIZUMAB
     Dosage: 2-150MG SYRINGES AND 1-75MG SYRINGE
     Route: 058
     Dates: start: 20250723
  4. ALBUTEROL [Concomitant]
     Active Substance: ALBUTEROL
  5. ATORVASTATIN [Concomitant]
     Active Substance: ATORVASTATIN
  6. BUDESONIDE [Concomitant]
     Active Substance: BUDESONIDE
  7. FLONASE [Concomitant]
     Active Substance: FLUTICASONE PROPIONATE
  8. IPRATROPIUM [Concomitant]
     Active Substance: IPRATROPIUM
  9. KETOCONAZOLE [Concomitant]
     Active Substance: KETOCONAZOLE
  10. LISINOPRIL [Concomitant]
     Active Substance: LISINOPRIL
  11. MECLIZINE [Concomitant]
     Active Substance: MECLIZINE HYDROCHLORIDE
  12. MONTELUKAST [Concomitant]
     Active Substance: MONTELUKAST
  13. PANTOPRAZOLE [Concomitant]
     Active Substance: PANTOPRAZOLE
  14. SPIRIVA [Concomitant]
     Active Substance: TIOTROPIUM BROMIDE MONOHYDRATE

REACTIONS (4)
  - Injection site extravasation [Unknown]
  - Haemorrhage [Unknown]
  - Burning sensation [Recovered/Resolved]
  - Product complaint [Unknown]

NARRATIVE: CASE EVENT DATE: 20250709
